FAERS Safety Report 8303519-6 (Version None)
Quarter: 2012Q2

REPORT INFORMATION
  Report Type: 
  Country: None (occurrence: None)
  Receive Date: 20120423
  Receipt Date: 20120411
  Transmission Date: 20120825
  Serious: Yes (Hospitalization, Disabling)
  Sender: FDA-Public Use
  Company Number: US-CELGENEUS-163-21880-12030524

PATIENT
  Sex: Male
  Weight: 80.812 kg

DRUGS (5)
  1. PROTONIX [Concomitant]
     Dosage: 40 MILLIGRAM
     Route: 065
  2. METOPROLOL TARTRATE [Concomitant]
     Dosage: 50 MILLIGRAM
     Route: 065
  3. LIPITOR [Concomitant]
     Dosage: 20 MILLIGRAM
     Route: 065
  4. REVLIMID [Suspect]
     Indication: MULTIPLE MYELOMA
     Dosage: 5 MILLIGRAM
     Route: 048
     Dates: start: 20120112, end: 20120212
  5. ASPIRIN [Concomitant]
     Dosage: 325 MILLIGRAM
     Route: 048

REACTIONS (4)
  - GASTROOESOPHAGITIS [None]
  - VOMITING [None]
  - DEHYDRATION [None]
  - CHOLECYSTITIS ACUTE [None]
